FAERS Safety Report 7423125-5 (Version None)
Quarter: 2011Q2

REPORT INFORMATION
  Report Type: 
  Country: None (occurrence: None)
  Receive Date: 20110419
  Receipt Date: 20110404
  Transmission Date: 20111010
  Serious: Yes (Death)
  Sender: FDA-Public Use
  Company Number: JP-CTI_01343_2011

PATIENT
  Age: 3 Year
  Sex: Female

DRUGS (11)
  1. FAMOTIDINE [Concomitant]
     Indication: GASTRITIS
     Route: 048
     Dates: end: 20110201
  2. COTRIM [Suspect]
     Indication: RESPIRATORY TRACT INFECTION
     Dosage: [WEDNESDAY, THURSDAY, FRIDAY, 3 DAYS ON AND 4 DAYS OFF, EVERY WEEK]
     Route: 048
     Dates: start: 20090516, end: 20110201
  3. L-CARBOCISTEINE [Concomitant]
     Indication: PRODUCTIVE COUGH
     Route: 048
     Dates: end: 20110201
  4. ANTIBIOTICS-RESISTANT LACTIC ACID BACTERIAE [Concomitant]
     Indication: DIARRHOEA
     Dosage: DF
     Route: 048
     Dates: start: 20110107, end: 20110201
  5. LEVOTHYROXINE SODIUM HYDRATE [Concomitant]
     Indication: PRODUCT USED FOR UNKNOWN INDICATION
     Dosage: DF
     Route: 048
     Dates: end: 20110201
  6. AMBROXOL HYDROCHLORIDE [Concomitant]
     Indication: PRODUCTIVE COUGH
     Route: 048
     Dates: end: 20110201
  7. HYDROCORTISONE [Concomitant]
     Indication: PRODUCT USED FOR UNKNOWN INDICATION
     Dosage: DF
     Route: 048
     Dates: end: 20110201
  8. SODIUM PICOSULFATE HYDRATE [Concomitant]
     Indication: CONSTIPATION
     Dosage: [0-20 DROPS]
     Route: 048
     Dates: end: 20110201
  9. COTRIM [Suspect]
     Indication: URINARY TRACT INFECTION
     Dosage: [WEDNESDAY, THURSDAY, FRIDAY, 3 DAYS ON AND 4 DAYS OFF, EVERY WEEK]
     Route: 048
     Dates: start: 20090516, end: 20110201
  10. ORAPENEM FINE GRANULES (TEBIPENEM PIVOXIL) [Suspect]
     Indication: URINARY TRACT INFECTION
     Route: 048
     Dates: start: 20110117, end: 20110201
  11. MEIACT MS FINE GRANULES (CEFDITOREN PIVOXIL) [Suspect]
     Indication: URINARY TRACT INFECTION
     Route: 048
     Dates: start: 20110107, end: 20110117

REACTIONS (13)
  - ALANINE AMINOTRANSFERASE [None]
  - BLOOD ALKALINE PHOSPHATASE INCREASED [None]
  - FREQUENT BOWEL MOVEMENTS [None]
  - HEPATIC FUNCTION ABNORMAL [None]
  - DIARRHOEA [None]
  - WHITE BLOOD CELL COUNT INCREASED [None]
  - RENAL FAILURE [None]
  - URINE OUTPUT DECREASED [None]
  - BLOOD LACTATE DEHYDROGENASE INCREASED [None]
  - MULTI-ORGAN FAILURE [None]
  - CARDIAC FAILURE [None]
  - ASPARTATE AMINOTRANSFERASE [None]
  - BLOOD CREATININE INCREASED [None]
